FAERS Safety Report 11388582 (Version 1)
Quarter: 2015Q3

REPORT INFORMATION
  Report Type: Spontaneous
  Country: IN (occurrence: IN)
  Receive Date: 20150817
  Receipt Date: 20150817
  Transmission Date: 20151125
  Serious: Yes (Death, Hospitalization, Other)
  Sender: FDA-Public Use
  Company Number: PHHY2015IN096325

PATIENT
  Age: 45 Year
  Sex: Female

DRUGS (3)
  1. IBUPROFENO [Suspect]
     Active Substance: IBUPROFEN
     Indication: ARTHRALGIA
     Route: 065
  2. TRIHEXYPHENIDY [Suspect]
     Active Substance: TRIHEXYPHENIDYL HYDROCHLORIDE
     Indication: ABNORMAL BEHAVIOUR
     Dosage: 6 MG, PER DAY
     Route: 065
  3. HALOPERIDOL. [Suspect]
     Active Substance: HALOPERIDOL
     Indication: ABNORMAL BEHAVIOUR
     Dosage: 10 MG PER DAY
     Route: 065

REACTIONS (13)
  - Abdominal pain [Recovered/Resolved]
  - Tachycardia [Recovered/Resolved]
  - Abdominal tenderness [Recovered/Resolved]
  - Intestinal perforation [Recovered/Resolved]
  - Ascites [None]
  - Necrosis ischaemic [None]
  - Faecaloma [Recovered/Resolved]
  - Leukocytosis [None]
  - Respiratory disorder [Fatal]
  - Anaemia [Recovered/Resolved]
  - Intestinal obstruction [Recovered/Resolved]
  - Constipation [Recovered/Resolved]
  - Drug abuse [Unknown]
